FAERS Safety Report 7532431-5 (Version None)
Quarter: 2011Q2

REPORT INFORMATION
  Report Type: 
  Country: None (occurrence: None)
  Receive Date: 20110608
  Receipt Date: 20110601
  Transmission Date: 20111010
  Serious: Yes (Other)
  Sender: FDA-Public Use
  Company Number: US-PFIZER INC-2011119935

PATIENT
  Age: 50 Year
  Sex: Female

DRUGS (1)
  1. LINEZOLID [Suspect]
     Dosage: 600 MG, EVERY 12 HOURS
     Route: 048

REACTIONS (3)
  - VOMITING [None]
  - NAUSEA [None]
  - CELLULITIS [None]
